FAERS Safety Report 25707639 (Version 3)
Quarter: 2025Q4

REPORT INFORMATION
  Report Type: Report from Study
  Country: US (occurrence: US)
  Receive Date: 20250820
  Receipt Date: 20251121
  Transmission Date: 20260118
  Serious: Yes (Hospitalization)
  Sender: ABBVIE
  Company Number: US-ABBVIE-6386630

PATIENT
  Age: 28 Year
  Sex: Male

DRUGS (2)
  1. RINVOQ [Suspect]
     Active Substance: UPADACITINIB
     Indication: Rheumatoid arthritis
     Route: 048
     Dates: start: 20231018
  2. RINVOQ [Suspect]
     Active Substance: UPADACITINIB
     Indication: Rheumatoid arthritis
     Route: 048
     Dates: start: 20240129

REACTIONS (5)
  - Slipping rib syndrome [Recovering/Resolving]
  - Seasonal allergy [Not Recovered/Not Resolved]
  - Chest pain [Unknown]
  - Incision site impaired healing [Unknown]
  - Allergic respiratory symptom [Not Recovered/Not Resolved]

NARRATIVE: CASE EVENT DATE: 20250101
